FAERS Safety Report 8741668 (Version 2)
Quarter: 2013Q4

REPORT INFORMATION
  Report Type: Spontaneous
  Country: US (occurrence: US)
  Receive Date: 20120824
  Receipt Date: 20131101
  Transmission Date: 20140711
  Serious: No
  Sender: FDA-Public Use
  Company Number: US-009507513-1208USA000108

PATIENT
  Sex: Female

DRUGS (3)
  1. PRINIVIL [Suspect]
     Indication: BLOOD PRESSURE
     Dosage: UNK
     Route: 048
  2. IBUPROFEN [Suspect]
     Indication: PAIN
  3. TRAMADOL HYDROCHLORIDE [Suspect]
     Indication: PAIN

REACTIONS (1)
  - Angioedema [Recovered/Resolved]
